FAERS Safety Report 13781579 (Version 4)
Quarter: 2019Q3

REPORT INFORMATION
  Report Type: Report from Study
  Country: CA (occurrence: CA)
  Receive Date: 20170724
  Receipt Date: 20190802
  Transmission Date: 20191004
  Serious: Yes (Hospitalization, Other)
  Sender: FDA-Public Use
  Company Number: PHHY2015CA068259

PATIENT
  Age: 64 Year
  Sex: Female

DRUGS (7)
  1. SANDOSTATIN [Suspect]
     Active Substance: OCTREOTIDE ACETATE
     Indication: NEUROENDOCRINE TUMOUR
     Dosage: 50 UG, TID
     Route: 058
     Dates: start: 2014
  2. SANDOSTATIN [Suspect]
     Active Substance: OCTREOTIDE ACETATE
     Indication: DIARRHOEA
  3. SANDOSTATIN LAR DEPOT [Suspect]
     Active Substance: OCTREOTIDE ACETATE
     Indication: DIARRHOEA
     Dosage: 30 MG, QMO
     Route: 030
     Dates: start: 20150721
  4. SANDOSTATIN LAR DEPOT [Suspect]
     Active Substance: OCTREOTIDE ACETATE
     Indication: NEUROENDOCRINE TUMOUR
     Dosage: 20 MG, QMO
     Route: 030
     Dates: start: 20150603
  5. SANDOSTATIN LAR DEPOT [Suspect]
     Active Substance: OCTREOTIDE ACETATE
     Dosage: 40 MG, QMO
     Route: 030
     Dates: start: 20150908
  6. SANDOSTATIN LAR DEPOT [Suspect]
     Active Substance: OCTREOTIDE ACETATE
     Dosage: 40 MG, (EVERY 3 WEEKS)
     Route: 030
     Dates: start: 20151124
  7. ENTOCORT [Concomitant]
     Active Substance: BUDESONIDE
     Indication: PRODUCT USED FOR UNKNOWN INDICATION
     Dosage: 9 MG, BID ((3 CAPSULES TWICE A DAY FOR 8 WEEKS)
     Route: 048
     Dates: start: 2017

REACTIONS (29)
  - Lung infection [Recovering/Resolving]
  - Dyspnoea [Unknown]
  - Cough [Unknown]
  - Bronchitis [Recovered/Resolved]
  - Injection site pain [Unknown]
  - Diarrhoea [Unknown]
  - Headache [Unknown]
  - Nausea [Unknown]
  - Needle issue [Unknown]
  - Colitis microscopic [Unknown]
  - Blood pressure increased [Unknown]
  - Pyrexia [Unknown]
  - Vision blurred [Not Recovered/Not Resolved]
  - Insomnia [Unknown]
  - Abdominal pain [Unknown]
  - Cataract [Recovering/Resolving]
  - Gait disturbance [Unknown]
  - Emphysema [Recovered/Resolved]
  - Fatigue [Unknown]
  - Heart rate increased [Unknown]
  - Vomiting [Unknown]
  - Inappropriate schedule of product administration [Unknown]
  - Product label issue [Unknown]
  - Spinal pain [Unknown]
  - Burning sensation [Unknown]
  - Therapeutic response decreased [Unknown]
  - Weight decreased [Unknown]
  - Visual impairment [Unknown]
  - Nasal congestion [Unknown]

NARRATIVE: CASE EVENT DATE: 2015
